FAERS Safety Report 20919267 (Version 1)
Quarter: 2022Q2

REPORT INFORMATION
  Report Type: Spontaneous
  Country: US (occurrence: None)
  Receive Date: 20220603
  Receipt Date: 20220603
  Transmission Date: 20220720
  Serious: Yes (Other)
  Sender: FDA-Public Use
  Company Number: None

PATIENT
  Age: 57 Year
  Sex: Female
  Weight: 77.7 kg

DRUGS (1)
  1. ETOMIDATE [Suspect]
     Active Substance: ETOMIDATE
     Indication: Sedative therapy
     Dosage: FREQUENCY : ONCE;?
     Route: 040
     Dates: start: 20220603, end: 20220603

REACTIONS (2)
  - Therapeutic product effect decreased [None]
  - Hypertonia [None]

NARRATIVE: CASE EVENT DATE: 20220603
